FAERS Safety Report 7553590-4 (Version None)
Quarter: 2011Q2

REPORT INFORMATION
  Report Type: 
  Country: None (occurrence: None)
  Receive Date: 20110617
  Receipt Date: 20110607
  Transmission Date: 20111010
  Serious: Yes (Other)
  Sender: FDA-Public Use
  Company Number: US-JNJFOC-20110605068

PATIENT
  Sex: Male
  Weight: 118.84 kg

DRUGS (4)
  1. LEVAQUIN [Suspect]
     Indication: URINARY TRACT INFECTION
     Route: 048
     Dates: start: 20040101
  2. NEURONTIN [Concomitant]
     Indication: NEURALGIA
     Dosage: 3 TIMES DAILY
     Route: 048
  3. MARIJUANA [Concomitant]
     Route: 065
  4. FLOMAX [Concomitant]
     Indication: URETHRAL STENOSIS
     Dosage: DAILY
     Route: 048

REACTIONS (6)
  - BUNION [None]
  - DIVERTICULUM [None]
  - MENISCUS LESION [None]
  - URETHRAL STENOSIS [None]
  - FEELING ABNORMAL [None]
  - HYPERTENSION [None]
